FAERS Safety Report 23191417 (Version 1)
Quarter: 2023Q4

REPORT INFORMATION
  Report Type: Spontaneous
  Country: US (occurrence: US)
  Receive Date: 20231116
  Receipt Date: 20231116
  Transmission Date: 20240110
  Serious: No
  Sender: FDA-Public Use
  Company Number: US-GLAXOSMITHKLINE-US2023153505

PATIENT
  Sex: Female

DRUGS (2)
  1. ZEJULA [Suspect]
     Active Substance: NIRAPARIB
     Indication: Genital neoplasm malignant female
     Dosage: 200 MG, QD
     Route: 048
     Dates: end: 20230818
  2. ZEJULA [Suspect]
     Active Substance: NIRAPARIB
     Indication: Genital neoplasm malignant female
     Dosage: 100 MG, QD
     Route: 048
     Dates: start: 20231101

REACTIONS (10)
  - Dyspnoea [Unknown]
  - Asthenia [Unknown]
  - Respiration abnormal [Unknown]
  - Cough [Unknown]
  - Gait disturbance [Unknown]
  - Hyperhidrosis [Unknown]
  - Palpitations [Unknown]
  - Sciatica [Unknown]
  - Urinary tract infection [Recovering/Resolving]
  - Coronavirus infection [Unknown]
